FAERS Safety Report 6885316-1 (Version None)
Quarter: 2010Q3

REPORT INFORMATION
  Report Type: 
  Country: None (occurrence: None)
  Receive Date: 20100729
  Receipt Date: 20100729
  Transmission Date: 20110219
  Serious: Yes (Other)
  Sender: FDA-Public Use
  Company Number: None

PATIENT
  Age: 32 Year
  Sex: Female
  Weight: 69.9 kg

DRUGS (2)
  1. NITROGLYCERIN [Suspect]
     Indication: TILT TABLE TEST
     Dosage: 0.4MG X2 SL
     Route: 060
     Dates: start: 20100727, end: 20100727
  2. NITROGLYCERIN [Suspect]

REACTIONS (3)
  - DRUG EFFECT DECREASED [None]
  - PRODUCT SOLUBILITY ABNORMAL [None]
  - PRODUCT SUBSTITUTION ISSUE [None]
